FAERS Safety Report 20921791 (Version 1)
Quarter: 2022Q2

REPORT INFORMATION
  Report Type: Spontaneous
  Country: CN (occurrence: CN)
  Receive Date: 20220606
  Receipt Date: 20220606
  Transmission Date: 20220720
  Serious: Yes (Other)
  Sender: FDA-Public Use
  Company Number: None

PATIENT
  Age: 53 Year
  Sex: Male
  Weight: 65 kg

DRUGS (6)
  1. MANNITOL [Suspect]
     Active Substance: MANNITOL
     Indication: Diuretic therapy
     Dosage: INJECTION, 100 ML, BID
     Route: 041
     Dates: start: 20220505, end: 20220509
  2. MANNITOL [Suspect]
     Active Substance: MANNITOL
     Indication: Oedema
  3. SODIUM CHLORIDE [Suspect]
     Active Substance: SODIUM CHLORIDE
     Indication: Medication dilution
     Dosage: 250 ML, BID
     Route: 041
     Dates: start: 20220504, end: 20220509
  4. SODIUM CHLORIDE [Suspect]
     Active Substance: SODIUM CHLORIDE
     Indication: Infection prophylaxis
     Dosage: 100 ML, BID
     Route: 041
     Dates: start: 20220505, end: 20220507
  5. CLINDAMYCIN PHOSPHATE [Suspect]
     Active Substance: CLINDAMYCIN PHOSPHATE
     Indication: Infection prophylaxis
     Dosage: 0.75 G, BID
     Route: 041
     Dates: start: 20220504, end: 20220509
  6. KETOROLAC TROMETHAMINE [Suspect]
     Active Substance: KETOROLAC TROMETHAMINE
     Indication: Analgesic therapy
     Dosage: 30 MG, BID
     Route: 041
     Dates: start: 20220505, end: 20220507

REACTIONS (2)
  - Rash erythematous [Recovering/Resolving]
  - Pruritus [Recovering/Resolving]

NARRATIVE: CASE EVENT DATE: 20220508
